FAERS Safety Report 8766855 (Version 1)
Quarter: 2012Q4

REPORT INFORMATION
  Report Type: 
  Country: US (occurrence: US)
  Receive Date: 20120904
  Receipt Date: 20120904
  Transmission Date: 20130627
  Serious: Yes (Life-Threatening, Other)
  Sender: FDA-Public Use
  Company Number: US-MYLANLABS-2012S1014929

PATIENT
  Age: 41 Year
  Sex: Male

DRUGS (7)
  1. EXTENDED PHENYTOIN SODIUM CAPSULES, USP [Suspect]
     Indication: CONVULSION
     Route: 048
     Dates: end: 20120508
  2. EXTENDED PHENYTOIN SODIUM CAPSULES, USP [Suspect]
     Indication: CONVULSION
     Route: 048
     Dates: start: 20120509, end: 20120716
  3. ULTRAM [Concomitant]
     Indication: PAIN
     Dosage: q4h to q6h
     Route: 048
  4. HYDROCODONE W/ACETAMINOPHEN [Concomitant]
     Indication: PAIN
     Route: 048
  5. LISINOPRIL/HCTZ [Concomitant]
     Dosage: 20mg/12.5mg
     Route: 048
  6. WARFARIN [Concomitant]
     Route: 048
  7. ATENOLOL [Concomitant]
     Route: 048

REACTIONS (2)
  - Drug ineffective [Recovered/Resolved]
  - Anticonvulsant drug level decreased [Not Recovered/Not Resolved]
